FAERS Safety Report 10293759 (Version 1)
Quarter: 2014Q3

REPORT INFORMATION
  Report Type: Spontaneous
  Country: US (occurrence: US)
  Receive Date: 20140710
  Receipt Date: 20140710
  Transmission Date: 20150326
  Serious: No
  Sender: FDA-Public Use
  Company Number: US-PURDUE-USA-2013-0109240

PATIENT
  Age: 46 Year
  Sex: Female

DRUGS (2)
  1. BUTRANS [Suspect]
     Active Substance: BUPRENORPHINE
     Indication: DEVELOPMENTAL HIP DYSPLASIA
     Dosage: 20 MCG/HR, UNK
     Route: 062
     Dates: end: 20131121
  2. BUTRANS [Suspect]
     Active Substance: BUPRENORPHINE
     Indication: INTERVERTEBRAL DISC DEGENERATION

REACTIONS (6)
  - Drug withdrawal syndrome [Not Recovered/Not Resolved]
  - Inappropriate schedule of drug administration [Unknown]
  - Headache [Unknown]
  - Application site vesicles [Unknown]
  - Nervousness [Unknown]
  - Tremor [Unknown]

NARRATIVE: CASE EVENT DATE: 20131202
